FAERS Safety Report 12887829 (Version 2)
Quarter: 2016Q4

REPORT INFORMATION
  Report Type: Report from Study
  Country: US (occurrence: US)
  Receive Date: 20161027
  Receipt Date: 20161118
  Transmission Date: 20170207
  Serious: Yes (Other)
  Sender: FDA-Public Use
  Company Number: US-AMGEN-USASL2016146786

PATIENT
  Age: 49 Year
  Sex: Male
  Weight: 78.46 kg

DRUGS (3)
  1. MESALAMINE. [Concomitant]
     Active Substance: MESALAMINE
     Indication: COLITIS ULCERATIVE
     Dosage: 1.2 G, BID
     Dates: start: 20101023
  2. REPATHA [Suspect]
     Active Substance: EVOLOCUMAB
     Indication: DRUG INTOLERANCE
     Dosage: 140 MG, Q2WK
     Route: 058
     Dates: start: 201512, end: 20160812
  3. REPATHA [Suspect]
     Active Substance: EVOLOCUMAB
     Indication: HYPERLIPIDAEMIA

REACTIONS (9)
  - Blood creatine phosphokinase increased [Not Recovered/Not Resolved]
  - Inappropriate schedule of drug administration [Unknown]
  - Muscle disorder [Unknown]
  - Asthenia [Unknown]
  - Adverse event [Unknown]
  - Off label use [Unknown]
  - Muscle fatigue [Not Recovered/Not Resolved]
  - Myalgia [Not Recovered/Not Resolved]
  - Muscle injury [Unknown]

NARRATIVE: CASE EVENT DATE: 201512
